FAERS Safety Report 9460088 (Version 37)
Quarter: 2018Q3

REPORT INFORMATION
  Report Type: Report from Study
  Country: CA (occurrence: CA)
  Receive Date: 20130808
  Receipt Date: 20180831
  Transmission Date: 20181010
  Serious: Yes (Hospitalization, Other)
  Sender: FDA-Public Use
  Company Number: PHHY2012CA064978

PATIENT
  Age: 68 Year
  Sex: Female

DRUGS (8)
  1. SANDOSTATIN LAR DEPOT [Suspect]
     Active Substance: OCTREOTIDE ACETATE
     Indication: NEUROENDOCRINE TUMOUR
     Dosage: 30 MG, QMO (EVERY 4 WEEKS)
     Route: 030
     Dates: start: 20120628
  2. SANDOSTATIN LAR DEPOT [Suspect]
     Active Substance: OCTREOTIDE ACETATE
     Dosage: 30 MG, QMO (EVERY 4 WEEKS)
     Route: 030
     Dates: start: 20120628
  3. SANDOSTATIN LAR DEPOT [Suspect]
     Active Substance: OCTREOTIDE ACETATE
     Dosage: 30 MG, EVERY 2 WEEKS
     Route: 030
     Dates: start: 20170505
  4. AFINITOR [Suspect]
     Active Substance: EVEROLIMUS
     Indication: NEUROENDOCRINE TUMOUR
     Dosage: 10 MG, QID
     Route: 048
     Dates: start: 201206
  5. NITRO PATCH [Suspect]
     Active Substance: NITROGLYCERIN
     Dosage: 0.6 MG, UNK
     Route: 065
  6. COSOPT [Concomitant]
     Active Substance: DORZOLAMIDE HYDROCHLORIDE\TIMOLOL MALEATE
     Indication: PRODUCT USED FOR UNKNOWN INDICATION
     Route: 065
  7. SANDOSTATIN LAR DEPOT [Suspect]
     Active Substance: OCTREOTIDE ACETATE
     Dosage: 30 MG, EVERY 2 WEEKS
     Route: 030
     Dates: start: 20170425
  8. NITRO PATCH [Suspect]
     Active Substance: NITROGLYCERIN
     Indication: PRODUCT USED FOR UNKNOWN INDICATION
     Dosage: 0.4 MG, UNK
     Route: 065

REACTIONS (39)
  - Spinal fracture [Unknown]
  - Urine odour abnormal [Recovered/Resolved]
  - Night sweats [Unknown]
  - Body temperature increased [Unknown]
  - Nausea [Unknown]
  - Syringe issue [Unknown]
  - Back pain [Unknown]
  - Angina pectoris [Unknown]
  - Vomiting [Unknown]
  - Hand fracture [Unknown]
  - Blood pressure systolic increased [Unknown]
  - Neuroendocrine tumour [Unknown]
  - Cardiac disorder [Unknown]
  - Sciatic nerve injury [Unknown]
  - Injection site mass [Unknown]
  - Sinus congestion [Recovering/Resolving]
  - Fatigue [Recovering/Resolving]
  - Injection site pain [Unknown]
  - Gait disturbance [Unknown]
  - Chest discomfort [Unknown]
  - Hypersomnia [Unknown]
  - Hot flush [Unknown]
  - Mobility decreased [Unknown]
  - Chest pain [Unknown]
  - Diabetes mellitus [Unknown]
  - Malignant neoplasm progression [Unknown]
  - Incontinence [Unknown]
  - Inappropriate schedule of drug administration [Unknown]
  - Vaginal haemorrhage [Unknown]
  - Kidney infection [Unknown]
  - Nasopharyngitis [Recovering/Resolving]
  - Rhinorrhoea [Recovering/Resolving]
  - Fall [Unknown]
  - Arthralgia [Unknown]
  - Blood glucose abnormal [Unknown]
  - Urinary tract infection [Unknown]
  - Sleep apnoea syndrome [Unknown]
  - Pollakiuria [Recovered/Resolved]
  - Blood pressure increased [Unknown]

NARRATIVE: CASE EVENT DATE: 20120726
